FAERS Safety Report 6620169-8 (Version None)
Quarter: 2010Q1

REPORT INFORMATION
  Report Type: 
  Country: None (occurrence: None)
  Receive Date: 20100308
  Receipt Date: 20100308
  Transmission Date: 20100710
  Serious: Yes (Hospitalization)
  Sender: FDA-Public Use
  Company Number: None

PATIENT
  Sex: Female
  Weight: 99.7913 kg

DRUGS (1)
  1. GELNIQUE [Suspect]
     Indication: INCONTINENCE
     Dosage: 10% 1 A DAY

REACTIONS (2)
  - FEELING ABNORMAL [None]
  - HYPOAESTHESIA [None]
